FAERS Safety Report 12077533 (Version 1)
Quarter: 2016Q1

REPORT INFORMATION
  Report Type: Report from Study
  Country: IT (occurrence: IT)
  Receive Date: 20160215
  Receipt Date: 20160215
  Transmission Date: 20160526
  Serious: Yes (Death, Other)
  Sender: FDA-Public Use
  Company Number: IT-BRISTOL-MYERS SQUIBB COMPANY-BMS-2016-010664

PATIENT
  Weight: 87 kg

DRUGS (4)
  1. NIVOLUMAB [Suspect]
     Active Substance: NIVOLUMAB
     Dosage: UNK
     Route: 042
     Dates: start: 20151027, end: 20151027
  2. NIVOLUMAB [Suspect]
     Active Substance: NIVOLUMAB
     Dosage: UNK
     Route: 042
     Dates: start: 20151125, end: 20151125
  3. NIVOLUMAB [Suspect]
     Active Substance: NIVOLUMAB
     Indication: NON-SMALL CELL LUNG CANCER
     Dosage: UNK
     Route: 042
     Dates: start: 20151012, end: 20151012
  4. NIVOLUMAB [Suspect]
     Active Substance: NIVOLUMAB
     Dosage: UNK
     Route: 042
     Dates: start: 20151111, end: 20151111

REACTIONS (2)
  - Death [Fatal]
  - Malignant neoplasm progression [Unknown]

NARRATIVE: CASE EVENT DATE: 20160205
